FAERS Safety Report 7809480-2 (Version None)
Quarter: 2011Q4

REPORT INFORMATION
  Report Type: 
  Country: None (occurrence: None)
  Receive Date: 20111012
  Receipt Date: 20110928
  Transmission Date: 20120403
  Serious: Yes (Other)
  Sender: FDA-Public Use
  Company Number: PHHY2011BR86741

PATIENT
  Age: 61 Year
  Sex: Male
  Weight: 91 kg

DRUGS (9)
  1. SIMVASTATIN [Concomitant]
     Dosage: 20 MG, UNK
  2. HYDROCHLOROTHIAZIDE [Concomitant]
     Dosage: 25 MG, UNK
  3. ATENOLOL [Concomitant]
     Dosage: 1 DF, BID
  4. EXFORGE [Suspect]
     Dosage: 1 DF, QD
  5. NATRILIX - SLOW RELEASE [Concomitant]
     Dosage: 1 DF, UNK
  6. NPH INSULIN [Concomitant]
     Dosage: 40 IU IN MORNING 20 IU IN NIGHT
  7. ALDAZ [Suspect]
  8. DIAMICRON MR [Concomitant]
     Dosage: 4 DF, UNK
  9. ASPIRIN [Concomitant]
     Dosage: 200 MG, X DAY

REACTIONS (11)
  - BLOOD PRESSURE SYSTOLIC INCREASED [None]
  - PROTEINURIA [None]
  - GLYCOSURIA [None]
  - LEFT VENTRICULAR DYSFUNCTION [None]
  - OEDEMA PERIPHERAL [None]
  - BLOOD CREATININE INCREASED [None]
  - WEIGHT INCREASED [None]
  - CARDIAC HYPERTROPHY [None]
  - BLOOD TRIGLYCERIDES INCREASED [None]
  - GLYCOSYLATED HAEMOGLOBIN INCREASED [None]
  - BLOOD GLUCOSE INCREASED [None]
